FAERS Safety Report 15628187 (Version 1)
Quarter: 2018Q4

REPORT INFORMATION
  Report Type: Spontaneous
  Country: TR (occurrence: TR)
  Receive Date: 20181116
  Receipt Date: 20181116
  Transmission Date: 20190205
  Serious: Yes (Hospitalization)
  Sender: FDA-Public Use
  Company Number: TR-MYLANLABS-2018M1086882

PATIENT
  Age: 58 Year
  Sex: Female

DRUGS (1)
  1. CARBIDOPA/LEVODOPA [Suspect]
     Active Substance: CARBIDOPA\LEVODOPA
     Indication: PARKINSON^S DISEASE
     Dosage: 24-HOUR INTESTINAL GEL INFUSION DAILY
     Route: 050

REACTIONS (5)
  - Aphasia [Recovered/Resolved]
  - Hyperhomocysteinaemia [Recovered/Resolved]
  - Deep vein thrombosis [Recovered/Resolved]
  - Cerebral thrombosis [Recovered/Resolved]
  - Pulmonary embolism [Recovered/Resolved]
